FAERS Safety Report 20047199 (Version 1)
Quarter: 2021Q4

REPORT INFORMATION
  Report Type: Spontaneous
  Country: US (occurrence: US)
  Receive Date: 20211109
  Receipt Date: 20211109
  Transmission Date: 20220303
  Serious: No
  Sender: FDA-Public Use
  Company Number: US-CIPLA LTD.-2021US02607

PATIENT

DRUGS (7)
  1. GABAPENTIN [Interacting]
     Active Substance: GABAPENTIN
     Indication: Neck pain
     Dosage: 100 MG, FOR FIRST WEEK
     Route: 065
     Dates: start: 202103
  2. GABAPENTIN [Interacting]
     Active Substance: GABAPENTIN
     Indication: Hypotonia
     Dosage: 200 MG, INCREASED DOSE
     Route: 065
     Dates: start: 202103
  3. GABAPENTIN [Interacting]
     Active Substance: GABAPENTIN
     Indication: Nerve compression
     Dosage: 300 MG, CURRENT DOSE
     Route: 065
     Dates: start: 202103
  4. ACETAMINOPHEN\HYDROCODONE [Interacting]
     Active Substance: ACETAMINOPHEN\HYDROCODONE
     Indication: Neck pain
     Dosage: 5/325 MG, QD
     Route: 065
     Dates: start: 202103
  5. ATORVASTATIN [Concomitant]
     Active Substance: ATORVASTATIN
     Indication: Blood cholesterol increased
     Dosage: 20 MILLIGRAM, QD
     Route: 065
     Dates: start: 2011
  6. ATORVASTATIN [Concomitant]
     Active Substance: ATORVASTATIN
     Dosage: 40 MILLIGRAM, QD
     Route: 065
     Dates: start: 2021
  7. LISINOPRIL [Concomitant]
     Active Substance: LISINOPRIL
     Indication: Hypertension
     Dosage: 20 MILLIGRAM, QD
     Route: 065
     Dates: start: 2011

REACTIONS (4)
  - Off label use [Unknown]
  - Drug ineffective for unapproved indication [Unknown]
  - Product use in unapproved indication [Unknown]
  - Labelled drug-drug interaction issue [Unknown]

NARRATIVE: CASE EVENT DATE: 20210301
